FAERS Safety Report 11099349 (Version 1)
Quarter: 2015Q2

REPORT INFORMATION
  Report Type: Spontaneous
  Country: JP (occurrence: JP)
  Receive Date: 20150508
  Receipt Date: 20150508
  Transmission Date: 20150821
  Serious: Yes (Other)
  Sender: FDA-Public Use
  Company Number: JP-JNJFOC-20150424794

PATIENT
  Age: 65 Year
  Sex: Female
  Weight: 59 kg

DRUGS (6)
  1. ITRIZOLE [Suspect]
     Active Substance: ITRACONAZOLE
     Indication: BODY TINEA
     Route: 048
     Dates: start: 20150225, end: 20150228
  2. MEROPENEM HYDRATE [Concomitant]
     Active Substance: MEROPENEM
     Route: 041
     Dates: start: 20150218
  3. CLINDAMYCIN PHOSPHATE. [Concomitant]
     Active Substance: CLINDAMYCIN PHOSPHATE
     Route: 065
     Dates: start: 20150221
  4. EMPECID [Concomitant]
     Route: 061
  5. PREDNISOLONE. [Concomitant]
     Active Substance: PREDNISOLONE
     Indication: AUTOIMMUNE HEPATITIS
     Route: 048
  6. ITRIZOLE [Suspect]
     Active Substance: ITRACONAZOLE
     Indication: TINEA CRURIS
     Route: 048
     Dates: start: 20150225, end: 20150228

REACTIONS (3)
  - Erythema annulare [Recovering/Resolving]
  - Flushing [Recovering/Resolving]
  - Drug eruption [Recovering/Resolving]

NARRATIVE: CASE EVENT DATE: 20150228
